FAERS Safety Report 24276335 (Version 1)
Quarter: 2024Q3

REPORT INFORMATION
  Report Type: Spontaneous
  Country: US (occurrence: US)
  Receive Date: 20240903
  Receipt Date: 20240903
  Transmission Date: 20241017
  Serious: No
  Sender: BRISTOL MYERS SQUIBB
  Company Number: US-BRISTOL-MYERS SQUIBB COMPANY-2024-139572

PATIENT
  Age: 30 Year
  Sex: Male
  Weight: 85.4 kg

DRUGS (2)
  1. OPDIVO [Suspect]
     Active Substance: NIVOLUMAB
     Indication: Neurofibrosarcoma
     Route: 042
  2. OPDIVO [Suspect]
     Active Substance: NIVOLUMAB
     Route: 042

REACTIONS (1)
  - Off label use [Unknown]
